FAERS Safety Report 7788332-0 (Version None)
Quarter: 2011Q3

REPORT INFORMATION
  Report Type: 
  Country: None (occurrence: None)
  Receive Date: 20110929
  Receipt Date: 20110929
  Transmission Date: 20111222
  Serious: Yes (Other)
  Sender: FDA-Public Use
  Company Number: None

PATIENT
  Sex: Female
  Weight: 83.4619 kg

DRUGS (1)
  1. NIASPAN [Suspect]
     Indication: BLOOD CHOLESTEROL ABNORMAL
     Dosage: 500MG 1X PER DAY ORALLY
     Route: 048
     Dates: start: 20110528, end: 20110902

REACTIONS (3)
  - HYPERHIDROSIS [None]
  - ABDOMINAL PAIN UPPER [None]
  - PAIN [None]
